FAERS Safety Report 24116291 (Version 2)
Quarter: 2025Q4

REPORT INFORMATION
  Report Type: Spontaneous
  Country: CA (occurrence: CA)
  Receive Date: 20240722
  Receipt Date: 20251224
  Transmission Date: 20260118
  Serious: Yes (Death, Other)
  Sender: BRISTOL-MYERS SQUIBB COMPANY
  Company Number: CA-BRISTOL-MYERS SQUIBB COMPANY-2024-115401

PATIENT
  Age: 40 Year
  Sex: Female

DRUGS (618)
  1. ORENCIA [Suspect]
     Active Substance: ABATACEPT
     Indication: Rheumatoid arthritis
     Route: 040
  2. ORENCIA [Suspect]
     Active Substance: ABATACEPT
     Route: 040
  3. ORENCIA [Suspect]
     Active Substance: ABATACEPT
     Route: 040
  4. ORENCIA [Suspect]
     Active Substance: ABATACEPT
     Route: 040
  5. ORENCIA [Suspect]
     Active Substance: ABATACEPT
     Indication: Rheumatoid arthritis
     Route: 058
  6. ORENCIA [Suspect]
     Active Substance: ABATACEPT
     Route: 042
  7. ORENCIA [Suspect]
     Active Substance: ABATACEPT
  8. ORENCIA [Suspect]
     Active Substance: ABATACEPT
  9. ORENCIA [Suspect]
     Active Substance: ABATACEPT
  10. ORENCIA [Suspect]
     Active Substance: ABATACEPT
  11. ORENCIA [Suspect]
     Active Substance: ABATACEPT
  12. ORENCIA [Suspect]
     Active Substance: ABATACEPT
     Route: 041
  13. ORENCIA [Suspect]
     Active Substance: ABATACEPT
  14. ORENCIA [Suspect]
     Active Substance: ABATACEPT
     Route: 041
  15. ORENCIA [Suspect]
     Active Substance: ABATACEPT
     Indication: Rheumatoid arthritis
  16. ORENCIA [Suspect]
     Active Substance: ABATACEPT
  17. ORENCIA [Suspect]
     Active Substance: ABATACEPT
  18. ORENCIA [Suspect]
     Active Substance: ABATACEPT
  19. ORENCIA [Suspect]
     Active Substance: ABATACEPT
  20. TRIAMCINOLONE ACETONIDE [Suspect]
     Active Substance: TRIAMCINOLONE ACETONIDE
     Indication: Rheumatoid arthritis
     Route: 014
  21. TRIAMCINOLONE ACETONIDE [Suspect]
     Active Substance: TRIAMCINOLONE ACETONIDE
     Dosage: SUSPENSION INTRA-ARTICULAR
     Route: 014
  22. ACETAMINOPHEN [Concomitant]
     Active Substance: ACETAMINOPHEN
     Indication: Rheumatoid arthritis
  23. ACETAMINOPHEN [Concomitant]
     Active Substance: ACETAMINOPHEN
  24. ACETAMINOPHEN [Concomitant]
     Active Substance: ACETAMINOPHEN
  25. ACETAMINOPHEN [Concomitant]
     Active Substance: ACETAMINOPHEN
  26. ACETAMINOPHEN [Concomitant]
     Active Substance: ACETAMINOPHEN
  27. ACETAMINOPHEN [Concomitant]
     Active Substance: ACETAMINOPHEN
  28. ACTEMRA [Concomitant]
     Active Substance: TOCILIZUMAB
     Indication: Rheumatoid arthritis
  29. ACTEMRA [Concomitant]
     Active Substance: TOCILIZUMAB
     Route: 058
  30. ACTEMRA [Concomitant]
     Active Substance: TOCILIZUMAB
     Route: 042
  31. ACTEMRA [Concomitant]
     Active Substance: TOCILIZUMAB
     Route: 058
  32. ACTEMRA [Concomitant]
     Active Substance: TOCILIZUMAB
     Route: 042
  33. ACTEMRA [Concomitant]
     Active Substance: TOCILIZUMAB
  34. ACTEMRA [Concomitant]
     Active Substance: TOCILIZUMAB
     Route: 058
  35. ACTEMRA [Concomitant]
     Active Substance: TOCILIZUMAB
     Route: 058
  36. ACTEMRA [Concomitant]
     Active Substance: TOCILIZUMAB
     Route: 058
  37. ACTEMRA [Concomitant]
     Active Substance: TOCILIZUMAB
     Route: 058
  38. ACTEMRA [Concomitant]
     Active Substance: TOCILIZUMAB
     Route: 042
  39. ACTEMRA [Concomitant]
     Active Substance: TOCILIZUMAB
     Route: 042
  40. ACTEMRA [Concomitant]
     Active Substance: TOCILIZUMAB
     Route: 016
  41. ACTEMRA [Concomitant]
     Active Substance: TOCILIZUMAB
     Route: 042
  42. ACTEMRA [Concomitant]
     Active Substance: TOCILIZUMAB
     Route: 042
  43. ACTEMRA [Concomitant]
     Active Substance: TOCILIZUMAB
     Route: 058
  44. ACTEMRA [Concomitant]
     Active Substance: TOCILIZUMAB
  45. ACTEMRA [Concomitant]
     Active Substance: TOCILIZUMAB
     Dosage: SOLUTION SUBCUTANEOUS
     Route: 058
  46. ACTEMRA [Concomitant]
     Active Substance: TOCILIZUMAB
     Dosage: SOLUTION SUBCUTANEOUS
     Route: 040
  47. ACTEMRA [Concomitant]
     Active Substance: TOCILIZUMAB
     Route: 040
  48. ACTEMRA [Concomitant]
     Active Substance: TOCILIZUMAB
     Route: 040
  49. ACTEMRA [Concomitant]
     Active Substance: TOCILIZUMAB
     Route: 040
  50. ACTEMRA [Concomitant]
     Active Substance: TOCILIZUMAB
     Route: 040
  51. ACTEMRA [Concomitant]
     Active Substance: TOCILIZUMAB
     Dosage: SOLUTION SUBCUTANEOUS
     Route: 040
  52. ACTEMRA [Concomitant]
     Active Substance: TOCILIZUMAB
     Route: 042
  53. ACTEMRA [Concomitant]
     Active Substance: TOCILIZUMAB
     Route: 042
  54. ACTEMRA [Concomitant]
     Active Substance: TOCILIZUMAB
     Route: 042
  55. ACTEMRA [Concomitant]
     Active Substance: TOCILIZUMAB
     Route: 042
  56. ACTEMRA [Concomitant]
     Active Substance: TOCILIZUMAB
     Route: 042
  57. ACTEMRA [Concomitant]
     Active Substance: TOCILIZUMAB
  58. ACTEMRA [Concomitant]
     Active Substance: TOCILIZUMAB
     Route: 058
  59. ACTEMRA [Concomitant]
     Active Substance: TOCILIZUMAB
     Route: 058
  60. ACTEMRA [Concomitant]
     Active Substance: TOCILIZUMAB
     Route: 058
  61. ACTEMRA [Concomitant]
     Active Substance: TOCILIZUMAB
     Route: 058
  62. ACTEMRA [Concomitant]
     Active Substance: TOCILIZUMAB
     Route: 058
  63. ACTEMRA [Concomitant]
     Active Substance: TOCILIZUMAB
  64. ACTEMRA [Concomitant]
     Active Substance: TOCILIZUMAB
  65. ACTEMRA [Concomitant]
     Active Substance: TOCILIZUMAB
     Route: 058
  66. ACTEMRA [Concomitant]
     Active Substance: TOCILIZUMAB
     Route: 040
  67. ACTEMRA [Concomitant]
     Active Substance: TOCILIZUMAB
     Route: 040
  68. ACTEMRA [Concomitant]
     Active Substance: TOCILIZUMAB
     Route: 040
  69. ACTEMRA [Concomitant]
     Active Substance: TOCILIZUMAB
     Route: 042
  70. ACTEMRA [Concomitant]
     Active Substance: TOCILIZUMAB
     Route: 016
  71. ACTEMRA [Concomitant]
     Active Substance: TOCILIZUMAB
  72. ADALIMUMAB [Concomitant]
     Active Substance: ADALIMUMAB
     Indication: Rheumatoid arthritis
     Route: 058
  73. ADALIMUMAB [Concomitant]
     Active Substance: ADALIMUMAB
     Route: 058
  74. ADALIMUMAB [Concomitant]
     Active Substance: ADALIMUMAB
     Dosage: SOLUTION?SUBCUTANEOUS
     Route: 058
  75. ADALIMUMAB [Concomitant]
     Active Substance: ADALIMUMAB
     Route: 058
  76. AIMOVIG [Concomitant]
     Active Substance: ERENUMAB-AOOE
     Indication: Migraine
  77. AIMOVIG [Concomitant]
     Active Substance: ERENUMAB-AOOE
     Indication: Psoriatic arthropathy
  78. ALENDRONIC ACID [Concomitant]
     Active Substance: ALENDRONIC ACID
     Indication: Rheumatoid arthritis
  79. ALENDRONIC ACID [Concomitant]
     Active Substance: ALENDRONIC ACID
     Route: 016
  80. ALENDRONIC ACID [Concomitant]
     Active Substance: ALENDRONIC ACID
     Route: 048
  81. ALENDRONIC ACID [Concomitant]
     Active Substance: ALENDRONIC ACID
     Route: 005
  82. ALENDRONIC ACID [Concomitant]
     Active Substance: ALENDRONIC ACID
     Route: 048
  83. ALENDRONIC ACID [Concomitant]
     Active Substance: ALENDRONIC ACID
  84. ALENDRONIC ACID [Concomitant]
     Active Substance: ALENDRONIC ACID
  85. ALENDRONIC ACID [Concomitant]
     Active Substance: ALENDRONIC ACID
     Route: 048
  86. ALENDRONIC ACID [Concomitant]
     Active Substance: ALENDRONIC ACID
     Route: 048
  87. APO-DICLO [Concomitant]
     Indication: Product used for unknown indication
     Dosage: TABLET (ENTERIC- COATED)
  88. LEFLUNOMIDE [Concomitant]
     Active Substance: LEFLUNOMIDE
     Indication: Rheumatoid arthritis
  89. LEFLUNOMIDE [Concomitant]
     Active Substance: LEFLUNOMIDE
  90. LEFLUNOMIDE [Concomitant]
     Active Substance: LEFLUNOMIDE
     Route: 048
  91. PREDNISONE [Concomitant]
     Active Substance: PREDNISONE
     Indication: Rheumatoid arthritis
     Route: 048
  92. PREDNISONE [Concomitant]
     Active Substance: PREDNISONE
     Route: 048
  93. PREDNISONE [Concomitant]
     Active Substance: PREDNISONE
     Route: 048
  94. PREDNISONE [Concomitant]
     Active Substance: PREDNISONE
  95. PREDNISONE [Concomitant]
     Active Substance: PREDNISONE
     Route: 048
  96. PREDNISONE [Concomitant]
     Active Substance: PREDNISONE
  97. PREDNISONE [Concomitant]
     Active Substance: PREDNISONE
  98. PREDNISONE [Concomitant]
     Active Substance: PREDNISONE
  99. PREDNISONE [Concomitant]
     Active Substance: PREDNISONE
     Route: 048
  100. PREDNISONE [Concomitant]
     Active Substance: PREDNISONE
  101. PREDNISONE [Concomitant]
     Active Substance: PREDNISONE
  102. APREMILAST [Concomitant]
     Active Substance: APREMILAST
     Indication: Rheumatoid arthritis
  103. APREMILAST [Concomitant]
     Active Substance: APREMILAST
  104. APREMILAST [Concomitant]
     Active Substance: APREMILAST
  105. APREMILAST [Concomitant]
     Active Substance: APREMILAST
  106. ARAVA [Concomitant]
     Active Substance: LEFLUNOMIDE
     Indication: Rheumatoid arthritis
     Route: 048
  107. ARAVA [Concomitant]
     Active Substance: LEFLUNOMIDE
  108. ARAVA [Concomitant]
     Active Substance: LEFLUNOMIDE
     Route: 048
  109. ARAVA [Concomitant]
     Active Substance: LEFLUNOMIDE
     Route: 048
  110. ARAVA [Concomitant]
     Active Substance: LEFLUNOMIDE
     Route: 048
  111. ARAVA [Concomitant]
     Active Substance: LEFLUNOMIDE
  112. ARAVA [Concomitant]
     Active Substance: LEFLUNOMIDE
     Route: 005
  113. ARAVA [Concomitant]
     Active Substance: LEFLUNOMIDE
     Route: 048
  114. ARAVA [Concomitant]
     Active Substance: LEFLUNOMIDE
     Route: 048
  115. ARAVA [Concomitant]
     Active Substance: LEFLUNOMIDE
     Route: 048
  116. ATOMOXETINE [Concomitant]
     Active Substance: ATOMOXETINE
     Indication: Migraine
  117. ATOMOXETINE [Concomitant]
     Active Substance: ATOMOXETINE
  118. AZATHIOPRINE SODIUM [Concomitant]
     Active Substance: AZATHIOPRINE SODIUM
     Indication: Product used for unknown indication
  119. BERINERT [Concomitant]
     Active Substance: HUMAN C1-ESTERASE INHIBITOR
     Indication: Product used for unknown indication
  120. BOTULINUM TOXIN TYPE A [Concomitant]
     Active Substance: BOTULINUM TOXIN TYPE A
     Indication: Product used for unknown indication
     Dosage: POWDER FOR SOLUTION
  121. BOTULINUM TOXIN TYPE A [Concomitant]
     Active Substance: BOTULINUM TOXIN TYPE A
     Dosage: POWDER FOR SOLUTION
  122. BUTRANS [Concomitant]
     Active Substance: BUPRENORPHINE
     Indication: Product used for unknown indication
  123. CALCIUM CARBONATE [Concomitant]
     Active Substance: CALCIUM CARBONATE
     Indication: Rheumatoid arthritis
  124. CANDESARTAN [Concomitant]
     Active Substance: CANDESARTAN
     Indication: Migraine
     Route: 048
  125. CANDESARTAN [Concomitant]
     Active Substance: CANDESARTAN
     Route: 048
  126. CERTOLIZUMAB PEGOL [Concomitant]
     Active Substance: CERTOLIZUMAB PEGOL
     Indication: Product used for unknown indication
     Route: 058
  127. CERTOLIZUMAB PEGOL [Concomitant]
     Active Substance: CERTOLIZUMAB PEGOL
  128. CERTOLIZUMAB PEGOL [Concomitant]
     Active Substance: CERTOLIZUMAB PEGOL
  129. CERTOLIZUMAB PEGOL [Concomitant]
     Active Substance: CERTOLIZUMAB PEGOL
     Route: 058
  130. CERTOLIZUMAB PEGOL [Concomitant]
     Active Substance: CERTOLIZUMAB PEGOL
     Route: 058
  131. CERTOLIZUMAB PEGOL [Concomitant]
     Active Substance: CERTOLIZUMAB PEGOL
     Route: 005
  132. CETIRIZINE HYDROCHLORIDE [Concomitant]
     Active Substance: CETIRIZINE HYDROCHLORIDE
     Indication: Rheumatoid arthritis
  133. CETIRIZINE HYDROCHLORIDE [Concomitant]
     Active Substance: CETIRIZINE HYDROCHLORIDE
  134. CETIRIZINE HYDROCHLORIDE [Concomitant]
     Active Substance: CETIRIZINE HYDROCHLORIDE
  135. CETIRIZINE HYDROCHLORIDE [Concomitant]
     Active Substance: CETIRIZINE HYDROCHLORIDE
  136. CETIRIZINE HYDROCHLORIDE [Concomitant]
     Active Substance: CETIRIZINE HYDROCHLORIDE
  137. CETIRIZINE HYDROCHLORIDE [Concomitant]
     Active Substance: CETIRIZINE HYDROCHLORIDE
  138. CETIRIZINE HYDROCHLORIDE [Concomitant]
     Active Substance: CETIRIZINE HYDROCHLORIDE
  139. CETIRIZINE HYDROCHLORIDE [Concomitant]
     Active Substance: CETIRIZINE HYDROCHLORIDE
  140. CETIRIZINE HYDROCHLORIDE [Concomitant]
     Active Substance: CETIRIZINE HYDROCHLORIDE
     Route: 048
  141. CETIRIZINE HYDROCHLORIDE [Concomitant]
     Active Substance: CETIRIZINE HYDROCHLORIDE
  142. CETIRIZINE HYDROCHLORIDE [Concomitant]
     Active Substance: CETIRIZINE HYDROCHLORIDE
  143. CETIRIZINE HYDROCHLORIDE [Concomitant]
     Active Substance: CETIRIZINE HYDROCHLORIDE
  144. CETIRIZINE HYDROCHLORIDE [Concomitant]
     Active Substance: CETIRIZINE HYDROCHLORIDE
  145. CETIRIZINE HYDROCHLORIDE [Concomitant]
     Active Substance: CETIRIZINE HYDROCHLORIDE
     Route: 048
  146. CETIRIZINE HYDROCHLORIDE [Concomitant]
     Active Substance: CETIRIZINE HYDROCHLORIDE
     Route: 048
  147. CETIRIZINE HYDROCHLORIDE [Concomitant]
     Active Substance: CETIRIZINE HYDROCHLORIDE
  148. CETIRIZINE HYDROCHLORIDE [Concomitant]
     Active Substance: CETIRIZINE HYDROCHLORIDE
     Route: 048
  149. CETIRIZINE HYDROCHLORIDE [Concomitant]
     Active Substance: CETIRIZINE HYDROCHLORIDE
  150. CETIRIZINE HYDROCHLORIDE [Concomitant]
     Active Substance: CETIRIZINE HYDROCHLORIDE
  151. CETIRIZINE HYDROCHLORIDE [Concomitant]
     Active Substance: CETIRIZINE HYDROCHLORIDE
  152. CETIRIZINE HYDROCHLORIDE [Concomitant]
     Active Substance: CETIRIZINE HYDROCHLORIDE
     Route: 048
  153. CETIRIZINE HYDROCHLORIDE [Concomitant]
     Active Substance: CETIRIZINE HYDROCHLORIDE
     Route: 048
  154. CETIRIZINE HYDROCHLORIDE [Concomitant]
     Active Substance: CETIRIZINE HYDROCHLORIDE
  155. CETIRIZINE HYDROCHLORIDE [Concomitant]
     Active Substance: CETIRIZINE HYDROCHLORIDE
     Route: 048
  156. CETIRIZINE HYDROCHLORIDE [Concomitant]
     Active Substance: CETIRIZINE HYDROCHLORIDE
  157. CETIRIZINE HYDROCHLORIDE [Concomitant]
     Active Substance: CETIRIZINE HYDROCHLORIDE
  158. CETIRIZINE HYDROCHLORIDE [Concomitant]
     Active Substance: CETIRIZINE HYDROCHLORIDE
  159. CETIRIZINE HYDROCHLORIDE [Concomitant]
     Active Substance: CETIRIZINE HYDROCHLORIDE
  160. CETIRIZINE HYDROCHLORIDE [Concomitant]
     Active Substance: CETIRIZINE HYDROCHLORIDE
     Route: 016
  161. CETIRIZINE HYDROCHLORIDE [Concomitant]
     Active Substance: CETIRIZINE HYDROCHLORIDE
     Route: 016
  162. CETIRIZINE HYDROCHLORIDE [Concomitant]
     Active Substance: CETIRIZINE HYDROCHLORIDE
  163. CETIRIZINE HYDROCHLORIDE [Concomitant]
     Active Substance: CETIRIZINE HYDROCHLORIDE
  164. CETIRIZINE HYDROCHLORIDE [Concomitant]
     Active Substance: CETIRIZINE HYDROCHLORIDE
     Route: 048
  165. CETIRIZINE HYDROCHLORIDE [Concomitant]
     Active Substance: CETIRIZINE HYDROCHLORIDE
     Route: 048
  166. CETIRIZINE HYDROCHLORIDE [Concomitant]
     Active Substance: CETIRIZINE HYDROCHLORIDE
  167. CHLORHEXIDINE GLUCONATE [Concomitant]
     Active Substance: CHLORHEXIDINE GLUCONATE
     Indication: Product used for unknown indication
  168. CHLORHEXIDINE GLUCONATE [Concomitant]
     Active Substance: CHLORHEXIDINE GLUCONATE
  169. CHLORHEXIDINE GLUCONATE [Concomitant]
     Active Substance: CHLORHEXIDINE GLUCONATE
  170. CHOLECALCIFEROL [Concomitant]
     Active Substance: CHOLECALCIFEROL
     Indication: Product used for unknown indication
  171. CIMZIA [Concomitant]
     Active Substance: CERTOLIZUMAB PEGOL
     Indication: Rheumatoid arthritis
  172. CIMZIA [Concomitant]
     Active Substance: CERTOLIZUMAB PEGOL
     Indication: Psoriasis
     Route: 058
  173. CIMZIA [Concomitant]
     Active Substance: CERTOLIZUMAB PEGOL
  174. CIMZIA [Concomitant]
     Active Substance: CERTOLIZUMAB PEGOL
     Route: 005
  175. CIMZIA [Concomitant]
     Active Substance: CERTOLIZUMAB PEGOL
     Route: 058
  176. CIMZIA [Concomitant]
     Active Substance: CERTOLIZUMAB PEGOL
  177. CIMZIA [Concomitant]
     Active Substance: CERTOLIZUMAB PEGOL
     Route: 058
  178. CIMZIA [Concomitant]
     Active Substance: CERTOLIZUMAB PEGOL
     Route: 058
  179. CIMZIA [Concomitant]
     Active Substance: CERTOLIZUMAB PEGOL
     Route: 005
  180. CORTISONE ACETATE [Concomitant]
     Active Substance: CORTISONE ACETATE
     Indication: Rheumatoid arthritis
     Route: 048
  181. CORTISONE ACETATE [Concomitant]
     Active Substance: CORTISONE ACETATE
  182. CORTISONE ACETATE [Concomitant]
     Active Substance: CORTISONE ACETATE
  183. CORTISONE ACETATE [Concomitant]
     Active Substance: CORTISONE ACETATE
     Route: 048
  184. CORTISONE ACETATE [Concomitant]
     Active Substance: CORTISONE ACETATE
  185. COSENTYX [Concomitant]
     Active Substance: SECUKINUMAB
     Indication: Rheumatoid arthritis
  186. COSENTYX [Concomitant]
     Active Substance: SECUKINUMAB
     Indication: Psoriatic arthropathy
     Route: 005
  187. COSENTYX [Concomitant]
     Active Substance: SECUKINUMAB
  188. COSENTYX [Concomitant]
     Active Substance: SECUKINUMAB
  189. COSENTYX [Concomitant]
     Active Substance: SECUKINUMAB
  190. DESOXIMETASONE [Concomitant]
     Active Substance: DESOXIMETASONE
     Indication: Rheumatoid arthritis
  191. DESOXIMETASONE [Concomitant]
     Active Substance: DESOXIMETASONE
     Route: 048
  192. DESOXIMETASONE [Concomitant]
     Active Substance: DESOXIMETASONE
  193. DESOXIMETASONE [Concomitant]
     Active Substance: DESOXIMETASONE
     Route: 048
  194. DESOXIMETASONE [Concomitant]
     Active Substance: DESOXIMETASONE
     Route: 058
  195. DESOXIMETASONE [Concomitant]
     Active Substance: DESOXIMETASONE
  196. DESOXIMETASONE [Concomitant]
     Active Substance: DESOXIMETASONE
     Route: 048
  197. DESOXIMETASONE [Concomitant]
     Active Substance: DESOXIMETASONE
     Route: 003
  198. DESOXIMETASONE [Concomitant]
     Active Substance: DESOXIMETASONE
     Route: 058
  199. DESOXIMETASONE [Concomitant]
     Active Substance: DESOXIMETASONE
     Route: 048
  200. DESOXIMETASONE [Concomitant]
     Active Substance: DESOXIMETASONE
     Route: 048
  201. DESOXIMETASONE [Concomitant]
     Active Substance: DESOXIMETASONE
     Route: 048
  202. DESOXIMETASONE [Concomitant]
     Active Substance: DESOXIMETASONE
     Route: 003
  203. DESOXIMETASONE [Concomitant]
     Active Substance: DESOXIMETASONE
     Route: 048
  204. DESOXIMETASONE [Concomitant]
     Active Substance: DESOXIMETASONE
  205. DESOXIMETASONE [Concomitant]
     Active Substance: DESOXIMETASONE
     Route: 048
  206. DESOXIMETASONE [Concomitant]
     Active Substance: DESOXIMETASONE
     Route: 058
  207. DESOXIMETASONE [Concomitant]
     Active Substance: DESOXIMETASONE
     Route: 058
  208. DESOXIMETASONE [Concomitant]
     Active Substance: DESOXIMETASONE
     Route: 003
  209. DESOXIMETASONE [Concomitant]
     Active Substance: DESOXIMETASONE
  210. DESOXIMETASONE [Concomitant]
     Active Substance: DESOXIMETASONE
     Route: 048
  211. DICLOFENAC DIETHYLAMINE [Concomitant]
     Active Substance: DICLOFENAC DIETHYLAMINE
     Indication: Product used for unknown indication
  212. DICLOFENAC SODIUM [Concomitant]
     Active Substance: DICLOFENAC SODIUM
     Indication: Product used for unknown indication
  213. DICLOFENAC SODIUM [Concomitant]
     Active Substance: DICLOFENAC SODIUM
  214. DICLOFENAC SODIUM [Concomitant]
     Active Substance: DICLOFENAC SODIUM
     Route: 058
  215. DOMPERIDONE MALEATE [Concomitant]
     Active Substance: DOMPERIDONE MALEATE
     Indication: Product used for unknown indication
  216. ENBREL [Concomitant]
     Active Substance: ETANERCEPT
     Indication: Rheumatoid arthritis
     Route: 058
  217. ENBREL [Concomitant]
     Active Substance: ETANERCEPT
  218. ENBREL [Concomitant]
     Active Substance: ETANERCEPT
  219. ENBREL [Concomitant]
     Active Substance: ETANERCEPT
     Route: 058
  220. ENBREL [Concomitant]
     Active Substance: ETANERCEPT
     Route: 058
  221. ENBREL [Concomitant]
     Active Substance: ETANERCEPT
     Route: 058
  222. ENBREL [Concomitant]
     Active Substance: ETANERCEPT
     Route: 058
  223. ENBREL [Concomitant]
     Active Substance: ETANERCEPT
  224. ENBREL [Concomitant]
     Active Substance: ETANERCEPT
  225. ENBREL [Concomitant]
     Active Substance: ETANERCEPT
  226. ENBREL [Concomitant]
     Active Substance: ETANERCEPT
  227. ERELZI [Concomitant]
     Active Substance: ETANERCEPT-SZZS
     Indication: Rheumatoid arthritis
     Route: 058
  228. ERELZI [Concomitant]
     Active Substance: ETANERCEPT-SZZS
  229. FLUMETHASONE [Concomitant]
     Active Substance: FLUMETHASONE
     Indication: Product used for unknown indication
  230. FLUMETHASONE PIVALATE [Concomitant]
     Active Substance: FLUMETHASONE PIVALATE
     Indication: Rheumatoid arthritis
  231. FLUMETHASONE PIVALATE [Concomitant]
     Active Substance: FLUMETHASONE PIVALATE
     Route: 003
  232. FOLIC ACID [Concomitant]
     Active Substance: FOLIC ACID
     Indication: Rheumatoid arthritis
  233. FOLIC ACID [Concomitant]
     Active Substance: FOLIC ACID
     Route: 048
  234. FOLIC ACID [Concomitant]
     Active Substance: FOLIC ACID
  235. FOLIC ACID [Concomitant]
     Active Substance: FOLIC ACID
     Route: 058
  236. FOLIC ACID [Concomitant]
     Active Substance: FOLIC ACID
  237. FOLIC ACID [Concomitant]
     Active Substance: FOLIC ACID
  238. FOLIC ACID [Concomitant]
     Active Substance: FOLIC ACID
  239. FOLIC ACID [Concomitant]
     Active Substance: FOLIC ACID
  240. FOLIC ACID [Concomitant]
     Active Substance: FOLIC ACID
  241. FOLIC ACID [Concomitant]
     Active Substance: FOLIC ACID
     Route: 048
  242. FOLIC ACID [Concomitant]
     Active Substance: FOLIC ACID
     Route: 048
  243. FOLIC ACID [Concomitant]
     Active Substance: FOLIC ACID
  244. FOLIC ACID [Concomitant]
     Active Substance: FOLIC ACID
  245. FOLIC ACID [Concomitant]
     Active Substance: FOLIC ACID
     Route: 048
  246. FOLIC ACID [Concomitant]
     Active Substance: FOLIC ACID
  247. FOLIC ACID [Concomitant]
     Active Substance: FOLIC ACID
  248. FOLIC ACID [Concomitant]
     Active Substance: FOLIC ACID
  249. FOLIC ACID [Concomitant]
     Active Substance: FOLIC ACID
  250. FOLIC ACID [Concomitant]
     Active Substance: FOLIC ACID
  251. FOLIC ACID [Concomitant]
     Active Substance: FOLIC ACID
     Route: 048
  252. FOLIC ACID [Concomitant]
     Active Substance: FOLIC ACID
     Route: 048
  253. FOLIC ACID [Concomitant]
     Active Substance: FOLIC ACID
     Route: 048
  254. FOLIC ACID [Concomitant]
     Active Substance: FOLIC ACID
     Route: 048
  255. FOLIC ACID [Concomitant]
     Active Substance: FOLIC ACID
     Route: 058
  256. FOLIC ACID [Concomitant]
     Active Substance: FOLIC ACID
  257. FOSAMAX [Concomitant]
     Active Substance: ALENDRONATE SODIUM
     Indication: Rheumatoid arthritis
     Route: 005
  258. FOSAMAX [Concomitant]
     Active Substance: ALENDRONATE SODIUM
     Route: 048
  259. FOSAMAX [Concomitant]
     Active Substance: ALENDRONATE SODIUM
  260. FOSAMAX [Concomitant]
     Active Substance: ALENDRONATE SODIUM
     Route: 016
  261. FOSAMAX [Concomitant]
     Active Substance: ALENDRONATE SODIUM
     Route: 058
  262. GOLD [Concomitant]
     Active Substance: GOLD
     Indication: Product used for unknown indication
  263. GOLD SODIUM THIOMALATE [Concomitant]
     Active Substance: GOLD SODIUM THIOMALATE
     Indication: Product used for unknown indication
  264. GOLIMUMAB [Concomitant]
     Active Substance: GOLIMUMAB
     Indication: Rheumatoid arthritis
  265. GOLIMUMAB [Concomitant]
     Active Substance: GOLIMUMAB
     Indication: Prostatic specific antigen
     Route: 058
  266. GOLIMUMAB [Concomitant]
     Active Substance: GOLIMUMAB
  267. GOLIMUMAB [Concomitant]
     Active Substance: GOLIMUMAB
     Route: 058
  268. GOLIMUMAB [Concomitant]
     Active Substance: GOLIMUMAB
     Route: 058
  269. GOLIMUMAB [Concomitant]
     Active Substance: GOLIMUMAB
  270. HUMIRA [Concomitant]
     Active Substance: ADALIMUMAB
     Indication: Rheumatoid arthritis
     Route: 058
  271. HUMIRA [Concomitant]
     Active Substance: ADALIMUMAB
  272. HUMIRA [Concomitant]
     Active Substance: ADALIMUMAB
     Dosage: SOLUTION SUBCUTANEOUS
  273. HUMIRA [Concomitant]
     Active Substance: ADALIMUMAB
     Route: 058
  274. HUMIRA [Concomitant]
     Active Substance: ADALIMUMAB
  275. HUMIRA [Concomitant]
     Active Substance: ADALIMUMAB
     Route: 058
  276. HUMIRA [Concomitant]
     Active Substance: ADALIMUMAB
  277. HUMIRA [Concomitant]
     Active Substance: ADALIMUMAB
     Route: 058
  278. HUMIRA [Concomitant]
     Active Substance: ADALIMUMAB
  279. HUMIRA [Concomitant]
     Active Substance: ADALIMUMAB
     Dosage: SOLUTION SUBCUTANEOUS
  280. HUMIRA [Concomitant]
     Active Substance: ADALIMUMAB
     Route: 058
  281. HUMIRA [Concomitant]
     Active Substance: ADALIMUMAB
     Route: 058
  282. HUMIRA [Concomitant]
     Active Substance: ADALIMUMAB
  283. HYDROCORTISONE [Concomitant]
     Active Substance: HYDROCORTISONE
     Indication: Product used for unknown indication
  284. HYDROXYCHLOROQUINE [Concomitant]
     Active Substance: HYDROXYCHLOROQUINE
     Indication: Rheumatoid arthritis
  285. HYDROXYCHLOROQUINE [Concomitant]
     Active Substance: HYDROXYCHLOROQUINE
     Route: 048
  286. HYDROXYCHLOROQUINE [Concomitant]
     Active Substance: HYDROXYCHLOROQUINE
  287. HYDROXYCHLOROQUINE [Concomitant]
     Active Substance: HYDROXYCHLOROQUINE
     Route: 058
  288. HYDROXYCHLOROQUINE [Concomitant]
     Active Substance: HYDROXYCHLOROQUINE
     Route: 048
  289. HYDROXYCHLOROQUINE [Concomitant]
     Active Substance: HYDROXYCHLOROQUINE
  290. HYDROXYCHLOROQUINE [Concomitant]
     Active Substance: HYDROXYCHLOROQUINE
     Route: 048
  291. HYDROXYCHLOROQUINE [Concomitant]
     Active Substance: HYDROXYCHLOROQUINE
     Route: 058
  292. HYDROXYCHLOROQUINE [Concomitant]
     Active Substance: HYDROXYCHLOROQUINE
     Route: 048
  293. HYDROXYCHLOROQUINE [Concomitant]
     Active Substance: HYDROXYCHLOROQUINE
     Route: 048
  294. HYDROXYCHLOROQUINE [Concomitant]
     Active Substance: HYDROXYCHLOROQUINE
     Route: 048
  295. HYDROXYCHLOROQUINE [Concomitant]
     Active Substance: HYDROXYCHLOROQUINE
  296. HYDROXYCHLOROQUINE [Concomitant]
     Active Substance: HYDROXYCHLOROQUINE
  297. HYDROXYCHLOROQUINE [Concomitant]
     Active Substance: HYDROXYCHLOROQUINE
     Route: 048
  298. HYDROXYCHLOROQUINE [Concomitant]
     Active Substance: HYDROXYCHLOROQUINE
     Route: 005
  299. HYDROXYCHLOROQUINE [Concomitant]
     Active Substance: HYDROXYCHLOROQUINE
  300. HYDROXYCHLOROQUINE [Concomitant]
     Active Substance: HYDROXYCHLOROQUINE
     Route: 016
  301. HYDROXYCHLOROQUINE [Concomitant]
     Active Substance: HYDROXYCHLOROQUINE
     Route: 048
  302. HYDROXYCHLOROQUINE [Concomitant]
     Active Substance: HYDROXYCHLOROQUINE
     Route: 058
  303. HYDROXYCHLOROQUINE [Concomitant]
     Active Substance: HYDROXYCHLOROQUINE
  304. HYDROXYCHLOROQUINE SULFATE [Concomitant]
     Active Substance: HYDROXYCHLOROQUINE SULFATE
     Indication: Rheumatoid arthritis
  305. HYDROXYCHLOROQUINE SULFATE [Concomitant]
     Active Substance: HYDROXYCHLOROQUINE SULFATE
     Route: 048
  306. HYDROXYCHLOROQUINE SULFATE [Concomitant]
     Active Substance: HYDROXYCHLOROQUINE SULFATE
  307. HYDROXYCHLOROQUINE SULFATE [Concomitant]
     Active Substance: HYDROXYCHLOROQUINE SULFATE
  308. HYDROXYCHLOROQUINE SULFATE [Concomitant]
     Active Substance: HYDROXYCHLOROQUINE SULFATE
     Route: 048
  309. HYDROXYCHLOROQUINE SULFATE [Concomitant]
     Active Substance: HYDROXYCHLOROQUINE SULFATE
  310. HYDROXYCHLOROQUINE SULFATE [Concomitant]
     Active Substance: HYDROXYCHLOROQUINE SULFATE
     Route: 048
  311. HYDROXYCHLOROQUINE SULFATE [Concomitant]
     Active Substance: HYDROXYCHLOROQUINE SULFATE
     Route: 005
  312. HYDROXYCHLOROQUINE SULFATE [Concomitant]
     Active Substance: HYDROXYCHLOROQUINE SULFATE
  313. HYDROXYCHLOROQUINE SULFATE [Concomitant]
     Active Substance: HYDROXYCHLOROQUINE SULFATE
     Route: 005
  314. HYDROXYCHLOROQUINE SULFATE [Concomitant]
     Active Substance: HYDROXYCHLOROQUINE SULFATE
  315. HYDROXYCHLOROQUINE SULFATE [Concomitant]
     Active Substance: HYDROXYCHLOROQUINE SULFATE
  316. HYDROXYCHLOROQUINE SULFATE [Concomitant]
     Active Substance: HYDROXYCHLOROQUINE SULFATE
     Route: 058
  317. HYDROXYCHLOROQUINE SULFATE [Concomitant]
     Active Substance: HYDROXYCHLOROQUINE SULFATE
     Route: 058
  318. HYDROXYCHLOROQUINE SULFATE [Concomitant]
     Active Substance: HYDROXYCHLOROQUINE SULFATE
     Route: 048
  319. HYDROXYCHLOROQUINE SULFATE [Concomitant]
     Active Substance: HYDROXYCHLOROQUINE SULFATE
     Route: 048
  320. HYDROXYCHLOROQUINE SULFATE [Concomitant]
     Active Substance: HYDROXYCHLOROQUINE SULFATE
  321. HYDROXYCHLOROQUINE SULFATE [Concomitant]
     Active Substance: HYDROXYCHLOROQUINE SULFATE
     Route: 005
  322. HYDROXYCHLOROQUINE SULFATE [Concomitant]
     Active Substance: HYDROXYCHLOROQUINE SULFATE
     Route: 016
  323. HYDROXYCHLOROQUINE SULFATE [Concomitant]
     Active Substance: HYDROXYCHLOROQUINE SULFATE
     Route: 048
  324. HYDROXYCHLOROQUINE SULFATE [Concomitant]
     Active Substance: HYDROXYCHLOROQUINE SULFATE
     Route: 048
  325. HYDROXYCHLOROQUINE SULFATE [Concomitant]
     Active Substance: HYDROXYCHLOROQUINE SULFATE
     Route: 048
  326. INFLIXIMAB [Concomitant]
     Active Substance: INFLIXIMAB
     Indication: Rheumatoid arthritis
  327. INFLIXIMAB [Concomitant]
     Active Substance: INFLIXIMAB
     Route: 040
  328. INFLIXIMAB [Concomitant]
     Active Substance: INFLIXIMAB
     Route: 040
  329. INFLIXIMAB [Concomitant]
     Active Substance: INFLIXIMAB
     Route: 040
  330. INFLIXIMAB [Concomitant]
     Active Substance: INFLIXIMAB
     Route: 040
  331. INFLIXIMAB [Concomitant]
     Active Substance: INFLIXIMAB
     Route: 041
  332. INFLIXIMAB [Concomitant]
     Active Substance: INFLIXIMAB
     Route: 041
  333. LAMICTAL [Concomitant]
     Active Substance: LAMOTRIGINE
     Indication: Product used for unknown indication
     Route: 048
  334. LAMICTAL [Concomitant]
     Active Substance: LAMOTRIGINE
     Route: 048
  335. LAMICTAL [Concomitant]
     Active Substance: LAMOTRIGINE
     Route: 048
  336. LAMICTAL [Concomitant]
     Active Substance: LAMOTRIGINE
     Route: 048
  337. LAMICTAL [Concomitant]
     Active Substance: LAMOTRIGINE
     Route: 048
  338. LAMICTAL [Concomitant]
     Active Substance: LAMOTRIGINE
     Route: 048
  339. LEFLUNOMIDE [Concomitant]
     Active Substance: LEFLUNOMIDE
     Indication: Rheumatoid arthritis
  340. LEFLUNOMIDE [Concomitant]
     Active Substance: LEFLUNOMIDE
  341. LEFLUNOMIDE [Concomitant]
     Active Substance: LEFLUNOMIDE
  342. LEFLUNOMIDE [Concomitant]
     Active Substance: LEFLUNOMIDE
  343. LEFLUNOMIDE [Concomitant]
     Active Substance: LEFLUNOMIDE
     Route: 048
  344. LEFLUNOMIDE [Concomitant]
     Active Substance: LEFLUNOMIDE
  345. LEFLUNOMIDE [Concomitant]
     Active Substance: LEFLUNOMIDE
  346. LEFLUNOMIDE [Concomitant]
     Active Substance: LEFLUNOMIDE
  347. LEFLUNOMIDE [Concomitant]
     Active Substance: LEFLUNOMIDE
  348. LEFLUNOMIDE [Concomitant]
     Active Substance: LEFLUNOMIDE
     Route: 048
  349. MEGLUMINE [Concomitant]
     Active Substance: MEGLUMINE
     Indication: Product used for unknown indication
     Route: 042
  350. MEGLUMINE [Concomitant]
     Active Substance: MEGLUMINE
     Route: 041
  351. METHOTREXATE [Concomitant]
     Active Substance: METHOTREXATE
     Indication: Rheumatoid arthritis
  352. METHOTREXATE [Concomitant]
     Active Substance: METHOTREXATE
     Route: 058
  353. METHOTREXATE [Concomitant]
     Active Substance: METHOTREXATE
     Route: 058
  354. METHOTREXATE [Concomitant]
     Active Substance: METHOTREXATE
     Route: 013
  355. METHOTREXATE [Concomitant]
     Active Substance: METHOTREXATE
  356. METHOTREXATE [Concomitant]
     Active Substance: METHOTREXATE
  357. METHOTREXATE [Concomitant]
     Active Substance: METHOTREXATE
     Route: 048
  358. METHOTREXATE [Concomitant]
     Active Substance: METHOTREXATE
     Route: 013
  359. METHOTREXATE [Concomitant]
     Active Substance: METHOTREXATE
     Route: 048
  360. METHOTREXATE [Concomitant]
     Active Substance: METHOTREXATE
  361. METHOTREXATE [Concomitant]
     Active Substance: METHOTREXATE
     Route: 048
  362. METHOTREXATE [Concomitant]
     Active Substance: METHOTREXATE
  363. METHOTREXATE [Concomitant]
     Active Substance: METHOTREXATE
  364. METHOTREXATE [Concomitant]
     Active Substance: METHOTREXATE
  365. METHOTREXATE [Concomitant]
     Active Substance: METHOTREXATE
     Route: 048
  366. METHOTREXATE [Concomitant]
     Active Substance: METHOTREXATE
     Route: 048
  367. METHOTREXATE [Concomitant]
     Active Substance: METHOTREXATE
     Route: 048
  368. METHOTREXATE [Concomitant]
     Active Substance: METHOTREXATE
     Route: 058
  369. METHOTREXATE [Concomitant]
     Active Substance: METHOTREXATE
     Route: 048
  370. METHOTREXATE [Concomitant]
     Active Substance: METHOTREXATE
  371. METHOTREXATE [Concomitant]
     Active Substance: METHOTREXATE
     Route: 016
  372. METHOTREXATE [Concomitant]
     Active Substance: METHOTREXATE
     Route: 048
  373. METHOTREXATE [Concomitant]
     Active Substance: METHOTREXATE
     Route: 048
  374. METHOTREXATE [Concomitant]
     Active Substance: METHOTREXATE
     Route: 048
  375. METHOTREXATE [Concomitant]
     Active Substance: METHOTREXATE
     Route: 048
  376. METHOTREXATE [Concomitant]
     Active Substance: METHOTREXATE
     Route: 048
  377. METHOTREXATE [Concomitant]
     Active Substance: METHOTREXATE
     Route: 048
  378. METHOTREXATE [Concomitant]
     Active Substance: METHOTREXATE
     Route: 058
  379. METHOTREXATE [Concomitant]
     Active Substance: METHOTREXATE
     Route: 016
  380. METHOTREXATE [Concomitant]
     Active Substance: METHOTREXATE
  381. METHOTREXATE [Concomitant]
     Active Substance: METHOTREXATE
  382. METHOTREXATE [Concomitant]
     Active Substance: METHOTREXATE
  383. METHOTREXATE [Concomitant]
     Active Substance: METHOTREXATE
  384. METHOTREXATE [Concomitant]
     Active Substance: METHOTREXATE
     Route: 013
  385. METHOTREXATE [Concomitant]
     Active Substance: METHOTREXATE
     Route: 058
  386. METHOTREXATE [Concomitant]
     Active Substance: METHOTREXATE
     Route: 048
  387. METHOTREXATE [Concomitant]
     Active Substance: METHOTREXATE
  388. METHYLPREDNISOLONE [Concomitant]
     Active Substance: METHYLPREDNISOLONE
     Indication: Rheumatoid arthritis
  389. METHYLPREDNISOLONE [Concomitant]
     Active Substance: METHYLPREDNISOLONE
  390. METHYLPREDNISOLONE [Concomitant]
     Active Substance: METHYLPREDNISOLONE
  391. METHYLPREDNISOLONE [Concomitant]
     Active Substance: METHYLPREDNISOLONE
     Route: 048
  392. METHYLPREDNISOLONE [Concomitant]
     Active Substance: METHYLPREDNISOLONE
     Route: 048
  393. METHYLPREDNISOLONE [Concomitant]
     Active Substance: METHYLPREDNISOLONE
  394. METHYLPREDNISOLONE SODIUM SUCCINATE [Concomitant]
     Active Substance: METHYLPREDNISOLONE SODIUM SUCCINATE
     Indication: Product used for unknown indication
  395. MINOCYCLINE [Concomitant]
     Active Substance: MINOCYCLINE HYDROCHLORIDE
     Indication: Product used for unknown indication
  396. MINOCYCLINE HYDROCHLORIDE [Concomitant]
     Active Substance: MINOCYCLINE HYDROCHLORIDE
     Indication: Rheumatoid arthritis
  397. MINOCYCLINE HYDROCHLORIDE [Concomitant]
     Active Substance: MINOCYCLINE HYDROCHLORIDE
  398. MINOCYCLINE HYDROCHLORIDE [Concomitant]
     Active Substance: MINOCYCLINE HYDROCHLORIDE
     Route: 030
  399. MYOCHRYSINE [Concomitant]
     Active Substance: GOLD SODIUM THIOMALATE
     Indication: Rheumatoid arthritis
     Dosage: SOLUTION INTRAMUSCULAR
     Route: 030
  400. MYRBETRIQ [Concomitant]
     Active Substance: MIRABEGRON
     Indication: Product used for unknown indication
  401. MYRBETRIQ [Concomitant]
     Active Substance: MIRABEGRON
  402. MYRBETRIQ [Concomitant]
     Active Substance: MIRABEGRON
     Dosage: TABLET (EXTENDED- RELEASE)
  403. MYRBETRIQ [Concomitant]
     Active Substance: MIRABEGRON
  404. NAPROXEN [Concomitant]
     Active Substance: NAPROXEN
     Indication: Product used for unknown indication
     Dosage: TABLET (ENTERIC- COATED)
  405. NAPROXEN SODIUM [Concomitant]
     Active Substance: NAPROXEN SODIUM
     Indication: Rheumatoid arthritis
  406. NUCALA [Concomitant]
     Active Substance: MEPOLIZUMAB
     Indication: Product used for unknown indication
  407. OXYCODONE [Concomitant]
     Active Substance: OXYCODONE
     Indication: Product used for unknown indication
  408. OXYCODONE TEREPHTHALATE [Concomitant]
     Active Substance: OXYCODONE TEREPHTHALATE
     Indication: Product used for unknown indication
  409. PHENYLEPHRINE HYDROCHLORIDE [Concomitant]
     Active Substance: PHENYLEPHRINE HYDROCHLORIDE
     Indication: Rheumatoid arthritis
  410. PHENYLEPHRINE HYDROCHLORIDE [Concomitant]
     Active Substance: PHENYLEPHRINE HYDROCHLORIDE
  411. PHENYLEPHRINE HYDROCHLORIDE [Concomitant]
     Active Substance: PHENYLEPHRINE HYDROCHLORIDE
     Route: 042
  412. PHENYLEPHRINE HYDROCHLORIDE [Concomitant]
     Active Substance: PHENYLEPHRINE HYDROCHLORIDE
     Route: 048
  413. PHENYLEPHRINE HYDROCHLORIDE [Concomitant]
     Active Substance: PHENYLEPHRINE HYDROCHLORIDE
     Route: 048
  414. PHENYLEPHRINE HYDROCHLORIDE [Concomitant]
     Active Substance: PHENYLEPHRINE HYDROCHLORIDE
     Route: 058
  415. PHTHALYLSULFATHIAZOLE [Concomitant]
     Active Substance: PHTHALYLSULFATHIAZOLE
     Indication: Rheumatoid arthritis
     Route: 048
  416. PHTHALYLSULFATHIAZOLE [Concomitant]
     Active Substance: PHTHALYLSULFATHIAZOLE
  417. PHTHALYLSULFATHIAZOLE [Concomitant]
     Active Substance: PHTHALYLSULFATHIAZOLE
     Route: 058
  418. PHTHALYLSULFATHIAZOLE [Concomitant]
     Active Substance: PHTHALYLSULFATHIAZOLE
  419. PHTHALYLSULFATHIAZOLE [Concomitant]
     Active Substance: PHTHALYLSULFATHIAZOLE
     Route: 048
  420. PHTHALYLSULFATHIAZOLE [Concomitant]
     Active Substance: PHTHALYLSULFATHIAZOLE
  421. PHTHALYLSULFATHIAZOLE [Concomitant]
     Active Substance: PHTHALYLSULFATHIAZOLE
  422. PHTHALYLSULFATHIAZOLE [Concomitant]
     Active Substance: PHTHALYLSULFATHIAZOLE
  423. PHTHALYLSULFATHIAZOLE [Concomitant]
     Active Substance: PHTHALYLSULFATHIAZOLE
     Route: 042
  424. PHTHALYLSULFATHIAZOLE [Concomitant]
     Active Substance: PHTHALYLSULFATHIAZOLE
     Route: 048
  425. PHTHALYLSULFATHIAZOLE [Concomitant]
     Active Substance: PHTHALYLSULFATHIAZOLE
     Route: 040
  426. PHTHALYLSULFATHIAZOLE [Concomitant]
     Active Substance: PHTHALYLSULFATHIAZOLE
     Route: 041
  427. PHTHALYLSULFATHIAZOLE [Concomitant]
     Active Substance: PHTHALYLSULFATHIAZOLE
     Route: 058
  428. PHTHALYLSULFATHIAZOLE [Concomitant]
     Active Substance: PHTHALYLSULFATHIAZOLE
     Route: 048
  429. PHTHALYLSULFATHIAZOLE [Concomitant]
     Active Substance: PHTHALYLSULFATHIAZOLE
     Route: 048
  430. PHTHALYLSULFATHIAZOLE [Concomitant]
     Active Substance: PHTHALYLSULFATHIAZOLE
  431. PHTHALYLSULFATHIAZOLE [Concomitant]
     Active Substance: PHTHALYLSULFATHIAZOLE
  432. PREDNISONE [Concomitant]
     Active Substance: PREDNISONE
     Indication: Rheumatoid arthritis
     Route: 048
  433. PREDNISONE [Concomitant]
     Active Substance: PREDNISONE
     Route: 048
  434. PREDNISONE [Concomitant]
     Active Substance: PREDNISONE
  435. PREDNISONE [Concomitant]
     Active Substance: PREDNISONE
  436. PREDNISONE [Concomitant]
     Active Substance: PREDNISONE
     Route: 048
  437. PREDNISONE [Concomitant]
     Active Substance: PREDNISONE
  438. PREDNISONE [Concomitant]
     Active Substance: PREDNISONE
  439. PREDNISONE [Concomitant]
     Active Substance: PREDNISONE
     Route: 048
  440. PREDNISONE [Concomitant]
     Active Substance: PREDNISONE
  441. PREDNISONE [Concomitant]
     Active Substance: PREDNISONE
     Route: 048
  442. PREDNISONE [Concomitant]
     Active Substance: PREDNISONE
     Route: 048
  443. PREDNISONE [Concomitant]
     Active Substance: PREDNISONE
  444. PREDNISONE [Concomitant]
     Active Substance: PREDNISONE
     Route: 048
  445. PSEUDOEPHEDRINE HYDROCHLORIDE [Concomitant]
     Active Substance: PSEUDOEPHEDRINE HYDROCHLORIDE
     Indication: Rheumatoid arthritis
  446. PSEUDOEPHEDRINE HYDROCHLORIDE [Concomitant]
     Active Substance: PSEUDOEPHEDRINE HYDROCHLORIDE
  447. PSEUDOEPHEDRINE HYDROCHLORIDE [Concomitant]
     Active Substance: PSEUDOEPHEDRINE HYDROCHLORIDE
  448. PSEUDOEPHEDRINE HYDROCHLORIDE [Concomitant]
     Active Substance: PSEUDOEPHEDRINE HYDROCHLORIDE
  449. PSEUDOEPHEDRINE HYDROCHLORIDE [Concomitant]
     Active Substance: PSEUDOEPHEDRINE HYDROCHLORIDE
  450. PSEUDOEPHEDRINE HYDROCHLORIDE [Concomitant]
     Active Substance: PSEUDOEPHEDRINE HYDROCHLORIDE
  451. PSEUDOEPHEDRINE HYDROCHLORIDE [Concomitant]
     Active Substance: PSEUDOEPHEDRINE HYDROCHLORIDE
  452. PSEUDOEPHEDRINE HYDROCHLORIDE [Concomitant]
     Active Substance: PSEUDOEPHEDRINE HYDROCHLORIDE
  453. RAMIPRIL [Concomitant]
     Active Substance: RAMIPRIL
     Indication: Rheumatoid arthritis
     Route: 042
  454. RAMIPRIL [Concomitant]
     Active Substance: RAMIPRIL
  455. RAMIPRIL [Concomitant]
     Active Substance: RAMIPRIL
     Route: 016
  456. RAMIPRIL [Concomitant]
     Active Substance: RAMIPRIL
     Route: 040
  457. RAMIPRIL [Concomitant]
     Active Substance: RAMIPRIL
     Route: 041
  458. RANITIDINE [Concomitant]
     Active Substance: RANITIDINE
     Indication: Product used for unknown indication
  459. CETIRIZINE HYDROCHLORIDE\PSEUDOEPHEDRINE HYDROCHLORIDE [Concomitant]
     Active Substance: CETIRIZINE HYDROCHLORIDE\PSEUDOEPHEDRINE HYDROCHLORIDE
     Indication: Rheumatoid arthritis
  460. CETIRIZINE HYDROCHLORIDE\PSEUDOEPHEDRINE HYDROCHLORIDE [Concomitant]
     Active Substance: CETIRIZINE HYDROCHLORIDE\PSEUDOEPHEDRINE HYDROCHLORIDE
  461. CETIRIZINE HYDROCHLORIDE\PSEUDOEPHEDRINE HYDROCHLORIDE [Concomitant]
     Active Substance: CETIRIZINE HYDROCHLORIDE\PSEUDOEPHEDRINE HYDROCHLORIDE
  462. CETIRIZINE HYDROCHLORIDE\PSEUDOEPHEDRINE HYDROCHLORIDE [Concomitant]
     Active Substance: CETIRIZINE HYDROCHLORIDE\PSEUDOEPHEDRINE HYDROCHLORIDE
  463. CETIRIZINE HYDROCHLORIDE\PSEUDOEPHEDRINE HYDROCHLORIDE [Concomitant]
     Active Substance: CETIRIZINE HYDROCHLORIDE\PSEUDOEPHEDRINE HYDROCHLORIDE
     Dosage: TABLET (EXTENDED- RELEASE)
     Route: 042
  464. CETIRIZINE HYDROCHLORIDE\PSEUDOEPHEDRINE HYDROCHLORIDE [Concomitant]
     Active Substance: CETIRIZINE HYDROCHLORIDE\PSEUDOEPHEDRINE HYDROCHLORIDE
  465. CETIRIZINE HYDROCHLORIDE\PSEUDOEPHEDRINE HYDROCHLORIDE [Concomitant]
     Active Substance: CETIRIZINE HYDROCHLORIDE\PSEUDOEPHEDRINE HYDROCHLORIDE
  466. CETIRIZINE HYDROCHLORIDE\PSEUDOEPHEDRINE HYDROCHLORIDE [Concomitant]
     Active Substance: CETIRIZINE HYDROCHLORIDE\PSEUDOEPHEDRINE HYDROCHLORIDE
     Route: 042
  467. CETIRIZINE HYDROCHLORIDE\PSEUDOEPHEDRINE HYDROCHLORIDE [Concomitant]
     Active Substance: CETIRIZINE HYDROCHLORIDE\PSEUDOEPHEDRINE HYDROCHLORIDE
     Dosage: TABLET (EXTENDED- RELEASE)
     Route: 040
  468. CETIRIZINE HYDROCHLORIDE\PSEUDOEPHEDRINE HYDROCHLORIDE [Concomitant]
     Active Substance: CETIRIZINE HYDROCHLORIDE\PSEUDOEPHEDRINE HYDROCHLORIDE
  469. CETIRIZINE HYDROCHLORIDE\PSEUDOEPHEDRINE HYDROCHLORIDE [Concomitant]
     Active Substance: CETIRIZINE HYDROCHLORIDE\PSEUDOEPHEDRINE HYDROCHLORIDE
  470. CETIRIZINE HYDROCHLORIDE\PSEUDOEPHEDRINE HYDROCHLORIDE [Concomitant]
     Active Substance: CETIRIZINE HYDROCHLORIDE\PSEUDOEPHEDRINE HYDROCHLORIDE
  471. CETIRIZINE HYDROCHLORIDE\PSEUDOEPHEDRINE HYDROCHLORIDE [Concomitant]
     Active Substance: CETIRIZINE HYDROCHLORIDE\PSEUDOEPHEDRINE HYDROCHLORIDE
     Dosage: TABLET (EXTENDED-RELEASE)
     Route: 041
  472. REMICADE [Concomitant]
     Active Substance: INFLIXIMAB
     Indication: Rheumatoid arthritis
     Route: 058
  473. REMICADE [Concomitant]
     Active Substance: INFLIXIMAB
     Dosage: POWDER FOR SOLUTION INTRAVENOUS
     Route: 042
  474. REMICADE [Concomitant]
     Active Substance: INFLIXIMAB
     Route: 042
  475. REMICADE [Concomitant]
     Active Substance: INFLIXIMAB
     Route: 042
  476. REMICADE [Concomitant]
     Active Substance: INFLIXIMAB
     Route: 042
  477. REMICADE [Concomitant]
     Active Substance: INFLIXIMAB
     Route: 058
  478. REMICADE [Concomitant]
     Active Substance: INFLIXIMAB
     Route: 042
  479. REMICADE [Concomitant]
     Active Substance: INFLIXIMAB
  480. REMICADE [Concomitant]
     Active Substance: INFLIXIMAB
     Route: 040
  481. REMICADE [Concomitant]
     Active Substance: INFLIXIMAB
     Route: 040
  482. REMICADE [Concomitant]
     Active Substance: INFLIXIMAB
     Route: 040
  483. REMICADE [Concomitant]
     Active Substance: INFLIXIMAB
     Route: 040
  484. REMICADE [Concomitant]
     Active Substance: INFLIXIMAB
     Route: 041
  485. REMICADE [Concomitant]
     Active Substance: INFLIXIMAB
     Route: 041
  486. REMICADE [Concomitant]
     Active Substance: INFLIXIMAB
     Route: 041
  487. REMICADE [Concomitant]
     Active Substance: INFLIXIMAB
     Dosage: POWDER FOR SOLUTION INTRAVENOUS
     Route: 041
  488. RITUXIMAB [Concomitant]
     Active Substance: RITUXIMAB
     Indication: Rheumatoid arthritis
     Route: 058
  489. RITUXIMAB [Concomitant]
     Active Substance: RITUXIMAB
  490. RITUXIMAB [Concomitant]
     Active Substance: RITUXIMAB
  491. RITUXIMAB [Concomitant]
     Active Substance: RITUXIMAB
     Route: 043
  492. RITUXIMAB [Concomitant]
     Active Substance: RITUXIMAB
     Route: 042
  493. RITUXIMAB [Concomitant]
     Active Substance: RITUXIMAB
  494. RITUXIMAB [Concomitant]
     Active Substance: RITUXIMAB
     Route: 058
  495. RITUXIMAB [Concomitant]
     Active Substance: RITUXIMAB
     Route: 042
  496. RITUXIMAB [Concomitant]
     Active Substance: RITUXIMAB
     Route: 043
  497. RITUXIMAB [Concomitant]
     Active Substance: RITUXIMAB
  498. RITUXIMAB [Concomitant]
     Active Substance: RITUXIMAB
     Route: 016
  499. RITUXIMAB [Concomitant]
     Active Substance: RITUXIMAB
     Route: 043
  500. RITUXIMAB [Concomitant]
     Active Substance: RITUXIMAB
     Route: 016
  501. RITUXIMAB [Concomitant]
     Active Substance: RITUXIMAB
     Route: 041
  502. RITUXIMAB [Concomitant]
     Active Substance: RITUXIMAB
     Route: 042
  503. RITUXIMAB [Concomitant]
     Active Substance: RITUXIMAB
     Route: 016
  504. RITUXIMAB [Concomitant]
     Active Substance: RITUXIMAB
     Route: 042
  505. RITUXIMAB [Concomitant]
     Active Substance: RITUXIMAB
     Route: 040
  506. RITUXIMAB [Concomitant]
     Active Substance: RITUXIMAB
     Route: 040
  507. RITUXIMAB [Concomitant]
     Active Substance: RITUXIMAB
     Route: 058
  508. RITUXIMAB [Concomitant]
     Active Substance: RITUXIMAB
     Route: 016
  509. RITUXIMAB [Concomitant]
     Active Substance: RITUXIMAB
     Route: 043
  510. RITUXIMAB [Concomitant]
     Active Substance: RITUXIMAB
     Route: 041
  511. RITUXIMAB [Concomitant]
     Active Substance: RITUXIMAB
     Route: 042
  512. RITUXIMAB [Concomitant]
     Active Substance: RITUXIMAB
     Route: 042
  513. RITUXIMAB [Concomitant]
     Active Substance: RITUXIMAB
     Route: 042
  514. RITUXIMAB [Concomitant]
     Active Substance: RITUXIMAB
  515. RITUXIMAB [Concomitant]
     Active Substance: RITUXIMAB
  516. RITUXIMAB [Concomitant]
     Active Substance: RITUXIMAB
  517. SULFASALAZINE [Concomitant]
     Active Substance: SULFASALAZINE
     Indication: Rheumatoid arthritis
  518. SIMPONI [Concomitant]
     Active Substance: GOLIMUMAB
     Indication: Rheumatoid arthritis
     Dosage: SOLUTION SUBCUTANEOUS
     Route: 058
  519. SIMPONI [Concomitant]
     Active Substance: GOLIMUMAB
  520. SIMPONI [Concomitant]
     Active Substance: GOLIMUMAB
  521. SIMPONI [Concomitant]
     Active Substance: GOLIMUMAB
  522. SIMPONI [Concomitant]
     Active Substance: GOLIMUMAB
     Route: 058
  523. SIMPONI [Concomitant]
     Active Substance: GOLIMUMAB
     Dosage: SOLUTION SUBCUTANEOUS
     Route: 058
  524. SIRUKUMAB [Concomitant]
     Active Substance: SIRUKUMAB
     Indication: Product used for unknown indication
  525. SIRUKUMAB [Concomitant]
     Active Substance: SIRUKUMAB
  526. GOLD SODIUM THIOMALATE [Concomitant]
     Active Substance: GOLD SODIUM THIOMALATE
     Indication: Product used for unknown indication
     Route: 048
  527. GOLD SODIUM THIOMALATE [Concomitant]
     Active Substance: GOLD SODIUM THIOMALATE
  528. GOLD SODIUM THIOMALATE [Concomitant]
     Active Substance: GOLD SODIUM THIOMALATE
  529. STELARA [Concomitant]
     Active Substance: USTEKINUMAB
     Indication: Rheumatoid arthritis
  530. STELARA [Concomitant]
     Active Substance: USTEKINUMAB
     Route: 058
  531. SULFASALAZINE [Concomitant]
     Active Substance: SULFASALAZINE
     Indication: Rheumatoid arthritis
  532. SULFASALAZINE [Concomitant]
     Active Substance: SULFASALAZINE
  533. SULFASALAZINE [Concomitant]
     Active Substance: SULFASALAZINE
     Route: 058
  534. SULFASALAZINE [Concomitant]
     Active Substance: SULFASALAZINE
     Route: 048
  535. SULFASALAZINE [Concomitant]
     Active Substance: SULFASALAZINE
  536. SULFASALAZINE [Concomitant]
     Active Substance: SULFASALAZINE
     Route: 058
  537. SULFASALAZINE [Concomitant]
     Active Substance: SULFASALAZINE
     Route: 048
  538. SULFASALAZINE [Concomitant]
     Active Substance: SULFASALAZINE
     Route: 058
  539. SULFASALAZINE [Concomitant]
     Active Substance: SULFASALAZINE
  540. SULFASALAZINE [Concomitant]
     Active Substance: SULFASALAZINE
     Route: 048
  541. SULFASALAZINE [Concomitant]
     Active Substance: SULFASALAZINE
  542. SULFASALAZINE [Concomitant]
     Active Substance: SULFASALAZINE
     Route: 048
  543. SULFASALAZINE [Concomitant]
     Active Substance: SULFASALAZINE
     Route: 058
  544. SULFASALAZINE [Concomitant]
     Active Substance: SULFASALAZINE
     Route: 016
  545. SULFASALAZINE [Concomitant]
     Active Substance: SULFASALAZINE
  546. SULFASALAZINE [Concomitant]
     Active Substance: SULFASALAZINE
  547. SULFASALAZINE [Concomitant]
     Active Substance: SULFASALAZINE
     Route: 048
  548. SULFASALAZINE [Concomitant]
     Active Substance: SULFASALAZINE
     Route: 048
  549. SULFASALAZINE [Concomitant]
     Active Substance: SULFASALAZINE
     Route: 048
  550. SULFASALAZINE [Concomitant]
     Active Substance: SULFASALAZINE
  551. SULFASALAZINE [Concomitant]
     Active Substance: SULFASALAZINE
     Route: 048
  552. SULFASALAZINE [Concomitant]
     Active Substance: SULFASALAZINE
     Route: 058
  553. SULFASALAZINE [Concomitant]
     Active Substance: SULFASALAZINE
  554. SULFASALAZINE [Concomitant]
     Active Substance: SULFASALAZINE
     Route: 058
  555. SULFASALAZINE [Concomitant]
     Active Substance: SULFASALAZINE
     Route: 048
  556. SULFASALAZINE [Concomitant]
     Active Substance: SULFASALAZINE
     Route: 058
  557. SULFASALAZINE [Concomitant]
     Active Substance: SULFASALAZINE
     Route: 058
  558. SULFASALAZINE [Concomitant]
     Active Substance: SULFASALAZINE
     Route: 048
  559. SULFASALAZINE [Concomitant]
     Active Substance: SULFASALAZINE
     Route: 048
  560. SULFASALAZINE [Concomitant]
     Active Substance: SULFASALAZINE
     Route: 048
  561. SULFASALAZINE [Concomitant]
     Active Substance: SULFASALAZINE
     Route: 048
  562. SULFASALAZINE [Concomitant]
     Active Substance: SULFASALAZINE
     Route: 058
  563. TOCILIZUMAB [Concomitant]
     Active Substance: TOCILIZUMAB
     Indication: Rheumatoid arthritis
     Route: 042
  564. TOCILIZUMAB [Concomitant]
     Active Substance: TOCILIZUMAB
  565. TOCILIZUMAB [Concomitant]
     Active Substance: TOCILIZUMAB
     Route: 058
  566. TOCILIZUMAB [Concomitant]
     Active Substance: TOCILIZUMAB
     Route: 058
  567. TOCILIZUMAB [Concomitant]
     Active Substance: TOCILIZUMAB
     Route: 016
  568. TOCILIZUMAB [Concomitant]
     Active Substance: TOCILIZUMAB
     Route: 042
  569. TOCILIZUMAB [Concomitant]
     Active Substance: TOCILIZUMAB
  570. TOCILIZUMAB [Concomitant]
     Active Substance: TOCILIZUMAB
  571. TOCILIZUMAB [Concomitant]
     Active Substance: TOCILIZUMAB
     Route: 041
  572. TOCILIZUMAB [Concomitant]
     Active Substance: TOCILIZUMAB
     Route: 041
  573. TOCILIZUMAB [Concomitant]
     Active Substance: TOCILIZUMAB
  574. TOFACITINIB [Concomitant]
     Active Substance: TOFACITINIB
     Indication: Rheumatoid arthritis
  575. TOFACITINIB CITRATE [Concomitant]
     Active Substance: TOFACITINIB CITRATE
     Indication: Rheumatoid arthritis
     Route: 048
  576. TOFACITINIB CITRATE [Concomitant]
     Active Substance: TOFACITINIB CITRATE
  577. TOFACITINIB CITRATE [Concomitant]
     Active Substance: TOFACITINIB CITRATE
  578. TOPIRAMATE [Concomitant]
     Active Substance: TOPIRAMATE
     Indication: Migraine
  579. TOPIRAMATE [Concomitant]
     Active Substance: TOPIRAMATE
  580. TOPIRAMATE [Concomitant]
     Active Substance: TOPIRAMATE
  581. TOPIRAMATE [Concomitant]
     Active Substance: TOPIRAMATE
  582. TOPIRAMATE [Concomitant]
     Active Substance: TOPIRAMATE
  583. TRAMADOL HYDROCHLORIDE [Concomitant]
     Active Substance: TRAMADOL HYDROCHLORIDE
     Indication: Product used for unknown indication
  584. USTEKINUMAB [Concomitant]
     Active Substance: USTEKINUMAB
     Indication: Product used for unknown indication
  585. USTEKINUMAB [Concomitant]
     Active Substance: USTEKINUMAB
     Route: 058
  586. USTEKINUMAB [Concomitant]
     Active Substance: USTEKINUMAB
     Route: 058
  587. USTEKINUMAB [Concomitant]
     Active Substance: USTEKINUMAB
  588. VITAMIN C [Concomitant]
     Active Substance: ASCORBIC ACID
     Indication: Product used for unknown indication
  589. XELJANZ [Concomitant]
     Active Substance: TOFACITINIB CITRATE
     Indication: Rheumatoid arthritis
  590. XELJANZ [Concomitant]
     Active Substance: TOFACITINIB CITRATE
     Route: 048
  591. XELJANZ [Concomitant]
     Active Substance: TOFACITINIB CITRATE
  592. XELJANZ [Concomitant]
     Active Substance: TOFACITINIB CITRATE
  593. XELJANZ [Concomitant]
     Active Substance: TOFACITINIB CITRATE
  594. XELJANZ [Concomitant]
     Active Substance: TOFACITINIB CITRATE
     Route: 048
  595. XELJANZ [Concomitant]
     Active Substance: TOFACITINIB CITRATE
  596. XELJANZ [Concomitant]
     Active Substance: TOFACITINIB CITRATE
     Route: 048
  597. XELJANZ [Concomitant]
     Active Substance: TOFACITINIB CITRATE
     Route: 048
  598. METFORMIN HYDROCHLORIDE [Concomitant]
     Active Substance: METFORMIN HYDROCHLORIDE
     Indication: Product used for unknown indication
     Route: 040
  599. TETRACYCLINE HYDROCHLORIDE [Concomitant]
     Active Substance: TETRACYCLINE HYDROCHLORIDE
     Indication: Rheumatoid arthritis
  600. TETRACYCLINE HYDROCHLORIDE [Concomitant]
     Active Substance: TETRACYCLINE HYDROCHLORIDE
  601. AZATHIOPRINE [Concomitant]
     Active Substance: AZATHIOPRINE
     Indication: Product used for unknown indication
  602. HYRIMOZ [Concomitant]
     Active Substance: ADALIMUMAB-ADAZ
     Indication: Rheumatoid arthritis
     Route: 058
  603. HYRIMOZ [Concomitant]
     Active Substance: ADALIMUMAB-ADAZ
     Dosage: ROUTE: SUBDERMAL
  604. HYRIMOZ [Concomitant]
     Active Substance: ADALIMUMAB-ADAZ
     Dosage: ROUTE: SUBDERMAL
  605. HYRIMOZ [Concomitant]
     Active Substance: ADALIMUMAB-ADAZ
     Route: 058
  606. HYRIMOZ [Concomitant]
     Active Substance: ADALIMUMAB-ADAZ
     Route: 058
  607. METFORMIN [Concomitant]
     Active Substance: METFORMIN HYDROCHLORIDE
     Indication: Product used for unknown indication
     Route: 040
  608. RANITIDINE HYDROCHLORIDE [Concomitant]
     Active Substance: RANITIDINE HYDROCHLORIDE
     Indication: Product used for unknown indication
  609. ALENDRONATE SODIUM [Concomitant]
     Active Substance: ALENDRONATE SODIUM
     Indication: Rheumatoid arthritis
     Route: 016
  610. ALENDRONATE SODIUM [Concomitant]
     Active Substance: ALENDRONATE SODIUM
     Route: 005
  611. ALENDRONATE SODIUM [Concomitant]
     Active Substance: ALENDRONATE SODIUM
     Route: 048
  612. APREMILAST [Concomitant]
     Active Substance: APREMILAST
     Indication: Product used for unknown indication
  613. LEFLUNOMIDE [Concomitant]
     Active Substance: LEFLUNOMIDE
     Indication: Rheumatoid arthritis
  614. LEFLUNOMIDE [Concomitant]
     Active Substance: LEFLUNOMIDE
  615. LEFLUNOMIDE [Concomitant]
     Active Substance: LEFLUNOMIDE
  616. VOLTAREN [Concomitant]
     Active Substance: DICLOFENAC SODIUM
     Indication: Migraine
  617. VOLTAREN [Concomitant]
     Active Substance: DICLOFENAC SODIUM
     Route: 058
  618. VOLTAREN [Concomitant]
     Active Substance: DICLOFENAC SODIUM

REACTIONS (1)
  - Death [Fatal]
